FAERS Safety Report 6958264-6 (Version None)
Quarter: 2010Q3

REPORT INFORMATION
  Report Type: 
  Country: None (occurrence: None)
  Receive Date: 20100827
  Receipt Date: 20100827
  Transmission Date: 20110219
  Serious: Yes (Life-Threatening, Disabling, Other)
  Sender: FDA-Public Use
  Company Number: None

PATIENT
  Sex: Female
  Weight: 65.7716 kg

DRUGS (3)
  1. 5 FU PLATINUM [Suspect]
     Indication: COLON OPERATION
  2. 5 FU PLATINUM [Suspect]
     Indication: POSTOPERATIVE CARE
  3. ELOXATIN [Suspect]
     Indication: INJURY
     Dates: start: 20070501, end: 20071001

REACTIONS (1)
  - LEUKAEMIA [None]
